FAERS Safety Report 4487855-X (Version None)
Quarter: 2004Q4

REPORT INFORMATION
  Report Type: 
  Country: None (occurrence: None)
  Receive Date: 20041025
  Receipt Date: 20041012
  Transmission Date: 20050328
  Serious: Yes (Hospitalization, Other)
  Sender: FDA-Public Use
  Company Number: 2004015123

PATIENT
  Age: 43 Year
  Sex: Female
  Weight: 72.5755 kg

DRUGS (5)
  1. ZOLOFT [Suspect]
     Indication: DEPRESSION
     Dosage: 100 MG (1 IN 1 D), ORAL
     Route: 048
     Dates: start: 20030101
  2. ZOLOFT (INTERFERON) [Suspect]
     Indication: HEPATITIS C
     Dates: start: 20040101, end: 20040101
  3. METAXALONE [Concomitant]
  4. ATENOLOL [Concomitant]
  5. ZOLPIDEM TARTRATE [Concomitant]

REACTIONS (24)
  - ABDOMINAL DISCOMFORT [None]
  - ABDOMINAL DISTENSION [None]
  - ANAEMIA [None]
  - ANOREXIA [None]
  - ARTHRALGIA [None]
  - BACK PAIN [None]
  - BALANCE DISORDER [None]
  - BOWEL MOVEMENT IRREGULARITY [None]
  - CHANGE OF BOWEL HABIT [None]
  - DEPRESSION [None]
  - DRUG EFFECT DECREASED [None]
  - DRUG TOXICITY [None]
  - HEPATIC CIRRHOSIS [None]
  - HEPATIC INFECTION [None]
  - HEPATITIS C [None]
  - JOINT STIFFNESS [None]
  - MOVEMENT DISORDER [None]
  - NAUSEA [None]
  - NEURALGIA [None]
  - UTERINE ATONY [None]
  - UTERINE LEIOMYOMA [None]
  - VISUAL DISTURBANCE [None]
  - VOMITING [None]
  - WEIGHT DECREASED [None]
